FAERS Safety Report 9164020 (Version 1)
Quarter: 2013Q1

REPORT INFORMATION
  Report Type: Report from Study
  Country: US (occurrence: US)
  Receive Date: 20130314
  Receipt Date: 20130314
  Transmission Date: 20140127
  Serious: Yes (Hospitalization)
  Sender: FDA-Public Use
  Company Number: US-009507513-1303USA005483

PATIENT
  Age: 66 Year
  Sex: Female

DRUGS (6)
  1. K-DUR [Suspect]
     Indication: MINERAL SUPPLEMENTATION
     Dosage: UNK
     Route: 048
  2. SAXAGLIPTIN [Suspect]
     Indication: TYPE 2 DIABETES MELLITUS
     Dosage: UNK
     Dates: start: 20110721
  3. GLUCOPHAGE [Suspect]
     Indication: TYPE 2 DIABETES MELLITUS
     Dosage: 1500 MG, UNK
  4. LANTUS [Suspect]
     Indication: TYPE 2 DIABETES MELLITUS
     Dosage: 1 DF, UNK
  5. DIURETIC (UNSPECIFIED) [Concomitant]
     Dosage: UNK
  6. CALCIUM (UNSPECIFIED) [Concomitant]

REACTIONS (2)
  - Hyperkalaemia [Recovered/Resolved]
  - Hyperkalaemia [Recovered/Resolved]
